FAERS Safety Report 13890309 (Version 1)
Quarter: 2017Q3

REPORT INFORMATION
  Report Type: Spontaneous
  Country: US (occurrence: US)
  Receive Date: 20170822
  Receipt Date: 20170822
  Transmission Date: 20171127
  Serious: No
  Sender: FDA-Public Use
  Company Number: US-JNJFOC-20170815164

PATIENT
  Age: 67 Year
  Sex: Male
  Weight: 108.86 kg

DRUGS (2)
  1. INVEGA SUSTENNA [Suspect]
     Active Substance: PALIPERIDONE PALMITATE
     Indication: SCHIZOPHRENIA
     Route: 030
     Dates: end: 201701
  2. TAMSULOSIN [Concomitant]
     Active Substance: TAMSULOSIN
     Indication: PROSTATIC DISORDER
     Route: 048
     Dates: start: 2016

REACTIONS (5)
  - Extrapyramidal disorder [Unknown]
  - Asthenia [Unknown]
  - Tinnitus [Unknown]
  - Irritability [Unknown]
  - Dyspnoea [Unknown]

NARRATIVE: CASE EVENT DATE: 201701
